FAERS Safety Report 15719413 (Version 1)
Quarter: 2018Q4

REPORT INFORMATION
  Report Type: Report from Study
  Country: IT (occurrence: IT)
  Receive Date: 20181213
  Receipt Date: 20181213
  Transmission Date: 20190205
  Serious: Yes (Other)
  Sender: FDA-Public Use
  Company Number: PHHY2018IT184673

PATIENT
  Sex: Female

DRUGS (1)
  1. COSENTYX [Suspect]
     Active Substance: SECUKINUMAB
     Indication: PRODUCT USED FOR UNKNOWN INDICATION
     Dosage: 2 PENS OF 150 MG, QMO (EVERY 28 DAYS)
     Route: 065
     Dates: start: 20171018

REACTIONS (3)
  - Vitamin D deficiency [Unknown]
  - Abdominal pain upper [Unknown]
  - Haematochezia [Unknown]
